FAERS Safety Report 23132968 (Version 3)
Quarter: 2024Q4

REPORT INFORMATION
  Report Type: Report from Study
  Country: US (occurrence: US)
  Receive Date: 20231101
  Receipt Date: 20241125
  Transmission Date: 20250115
  Serious: Yes (Other)
  Sender: UCB
  Company Number: US-UCBSA-2023051973

PATIENT
  Age: 9 Year
  Sex: Male
  Weight: 48 kg

DRUGS (7)
  1. FINTEPLA [Suspect]
     Active Substance: FENFLURAMINE
     Indication: Severe myoclonic epilepsy of infancy
     Dosage: 0.62 MG/KG/DAY TOTAL: 19.8 MG/DAY
     Route: 048
     Dates: start: 20200910
  2. FINTEPLA [Suspect]
     Active Substance: FENFLURAMINE
     Dosage: 0.53 MG/KG/DAY TOTAL: 19.8 MG/DAY
     Route: 048
     Dates: end: 20220308
  3. FINTEPLA [Suspect]
     Active Substance: FENFLURAMINE
     Dosage: 0.56 MG/KG/DAY TOTAL: 21.2 MG/DAY
     Route: 048
  4. FINTEPLA [Suspect]
     Active Substance: FENFLURAMINE
     Dosage: 0.45 MG/KG/DAY TOTAL: 21.2 MG/DAY
     Route: 048
  5. FINTEPLA [Suspect]
     Active Substance: FENFLURAMINE
     Dosage: 4.8 MILLILITER, 2X/DAY (BID)
     Route: 048
  6. FINTEPLA [Suspect]
     Active Substance: FENFLURAMINE
     Dosage: 0.44 MILLIGRAM/KILOGRAM, ONCE DAILY (QD)
     Route: 048
  7. FINTEPLA [Suspect]
     Active Substance: FENFLURAMINE
     Dosage: 0.39 MILLIGRAM PER KILOGRAM PER DAY

REACTIONS (1)
  - Aortic valve incompetence [Not Recovered/Not Resolved]

NARRATIVE: CASE EVENT DATE: 20220308
